FAERS Safety Report 9209306 (Version 1)
Quarter: 2013Q1

REPORT INFORMATION
  Report Type: Spontaneous
  Country: US (occurrence: None)
  Receive Date: 20120820
  Receipt Date: 20120820
  Transmission Date: 20140127
  Serious: No
  Sender: FDA-Public Use
  Company Number: 1000031206

PATIENT
  Age: 56 Year
  Sex: Female

DRUGS (5)
  1. VIIBRYD (VILAZODONE)(10 MILLIGRAM, TABLETS) [Suspect]
     Indication: DEPRESSION
     Route: 048
     Dates: start: 20120608
  2. ACTONEL (RISEDRONATE SODIUM) (RISEDRONATE SODIUM) [Concomitant]
  3. VESICARE (SOLIFENACIN SUCCINATE)  (SOLIFENACIN SUCCINATE) [Concomitant]
  4. ZYRTEC (CETIRIZINE HYDROCHLORIDE)  (CETIRIZINE HYDROCHLORIDE) [Concomitant]
  5. FLONASE (FLUTICASONE PROPIONATE)  (FLUTICASONE PROPIONATE) [Concomitant]

REACTIONS (3)
  - Insomnia [None]
  - Palpitations [None]
  - Anxiety [None]
